FAERS Safety Report 6883090-6 (Version None)
Quarter: 2010Q3

REPORT INFORMATION
  Report Type: 
  Country: None (occurrence: None)
  Receive Date: 20100727
  Receipt Date: 20100716
  Transmission Date: 20110219
  Serious: Yes (Death, Hospitalization)
  Sender: FDA-Public Use
  Company Number: 2010EU003570

PATIENT
  Age: 37 Year
  Sex: Female

DRUGS (4)
  1. TACROLIMUS [Suspect]
     Indication: LUNG TRANSPLANT
  2. MYCOPHENOLATE MOFETIL [Suspect]
     Indication: LUNG TRANSPLANT
     Dosage: 750 MG
  3. PREDNISONE [Suspect]
     Indication: LUNG TRANSPLANT
     Dosage: 37.5 MG
  4. VORICONAZOLE [Concomitant]

REACTIONS (20)
  - ACUTE VESTIBULAR SYNDROME [None]
  - BLOOD CULTURE POSITIVE [None]
  - CEREBRAL HAEMORRHAGE [None]
  - CEREBRAL ISCHAEMIA [None]
  - CYTOMEGALOVIRUS INFECTION [None]
  - DIZZINESS [None]
  - DRUG LEVEL DECREASED [None]
  - DYSARTHRIA [None]
  - FUNGAL ENDOCARDITIS [None]
  - FUNGAL INFECTION [None]
  - GASTROINTESTINAL DISORDER [None]
  - GENOTYPE DRUG RESISTANCE TEST POSITIVE [None]
  - HEADACHE [None]
  - HEMIPLEGIA [None]
  - LEUKOPENIA [None]
  - NEUROLOGICAL DECOMPENSATION [None]
  - PSEUDALLESCHERIA INFECTION [None]
  - PYREXIA [None]
  - SCEDOSPORIUM INFECTION [None]
  - SKIN NODULE [None]
